FAERS Safety Report 5862427-0 (Version None)
Quarter: 2008Q3

REPORT INFORMATION
  Report Type: 
  Country: None (occurrence: None)
  Receive Date: 20080828
  Receipt Date: 20080819
  Transmission Date: 20090109
  Serious: Yes (Other)
  Sender: FDA-Public Use
  Company Number: US-ROCHE-458424

PATIENT
  Sex: Male
  Weight: 93.4 kg

DRUGS (1)
  1. ACCUTANE [Suspect]
     Indication: ACNE
     Route: 065
     Dates: start: 20000401, end: 20000501

REACTIONS (10)
  - ANGER [None]
  - ANXIETY [None]
  - BIPOLAR DISORDER [None]
  - COLITIS ULCERATIVE [None]
  - COLONIC POLYP [None]
  - DEPRESSED MOOD [None]
  - DRUG TOXICITY [None]
  - IMPULSIVE BEHAVIOUR [None]
  - SUICIDAL IDEATION [None]
  - THERAPEUTIC AGENT TOXICITY [None]
